FAERS Safety Report 22217855 (Version 6)
Quarter: 2024Q1

REPORT INFORMATION
  Report Type: Spontaneous
  Country: FR (occurrence: FR)
  Receive Date: 20230417
  Receipt Date: 20240329
  Transmission Date: 20240410
  Serious: Yes (Other)
  Sender: FDA-Public Use
  Company Number: FR-JNJFOC-20230415761

PATIENT
  Age: 57 Year
  Sex: Female
  Weight: 75 kg

DRUGS (2)
  1. TECVAYLI [Suspect]
     Active Substance: TECLISTAMAB-CQYV
     Indication: Plasma cell myeloma
     Route: 065
     Dates: start: 20230619
  2. TECVAYLI [Suspect]
     Active Substance: TECLISTAMAB-CQYV
     Route: 065
     Dates: end: 20240318

REACTIONS (6)
  - Pulmonary embolism [Unknown]
  - Pneumothorax [Unknown]
  - Thrombosis [Unknown]
  - Plasma cell myeloma [Unknown]
  - Post-acute COVID-19 syndrome [Unknown]
  - Parainfluenzae virus infection [Unknown]
